FAERS Safety Report 12642437 (Version 3)
Quarter: 2016Q4

REPORT INFORMATION
  Report Type: Spontaneous
  Country: US (occurrence: US)
  Receive Date: 20160810
  Receipt Date: 20161005
  Transmission Date: 20170207
  Serious: Yes (Other)
  Sender: FDA-Public Use
  Company Number: US-RELYPSA-RLY2016001685

PATIENT
  Age: 55 Year
  Sex: Male

DRUGS (25)
  1. HYDROCHLOROTHIAZIDE. [Concomitant]
     Active Substance: HYDROCHLOROTHIAZIDE
  2. BRIMONIDINE [Concomitant]
     Active Substance: BRIMONIDINE TARTRATE
  3. ACETAMINOPHEN AND CODEINE [Concomitant]
     Active Substance: ACETAMINOPHEN\CODEINE PHOSPHATE
  4. VELTASSA [Suspect]
     Active Substance: PATIROMER
     Indication: HYPERKALAEMIA
     Dosage: 8.4 G, QD
     Route: 048
     Dates: start: 20160617, end: 20160802
  5. ONDASETRON                         /00955301/ [Concomitant]
     Active Substance: ONDANSETRON
  6. VIGAMOX [Concomitant]
     Active Substance: MOXIFLOXACIN HYDROCHLORIDE
  7. PREDNISOLONE. [Concomitant]
     Active Substance: PREDNISOLONE
  8. DORZOLAMIDE [Concomitant]
     Active Substance: DORZOLAMIDE
  9. TIMOLOL MALEATE. [Concomitant]
     Active Substance: TIMOLOL MALEATE
  10. LANTUS [Concomitant]
     Active Substance: INSULIN GLARGINE
  11. ATROPINE SULFATE. [Concomitant]
     Active Substance: ATROPINE SULFATE
  12. HYDROCODONE BITARTRATE AND ACETAMINOPHEN [Concomitant]
     Active Substance: ACETAMINOPHEN\HYDROCODONE BITARTRATE
  13. VALSARTAN. [Concomitant]
     Active Substance: VALSARTAN
  14. KIONEX [Concomitant]
     Active Substance: SODIUM POLYSTYRENE SULFONATE
  15. CARVEDILOL. [Concomitant]
     Active Substance: CARVEDILOL
  16. SIMVASTATIN. [Concomitant]
     Active Substance: SIMVASTATIN
  17. VERAPAMIL [Concomitant]
     Active Substance: VERAPAMIL HYDROCHLORIDE
  18. NIFEDICAL XL [Concomitant]
     Active Substance: NIFEDIPINE
  19. TRADJENTA [Concomitant]
     Active Substance: LINAGLIPTIN
  20. FUROSEMIDE. [Concomitant]
     Active Substance: FUROSEMIDE
  21. METOPROLOL TARTRATE. [Concomitant]
     Active Substance: METOPROLOL TARTRATE
  22. METFORMIN [Concomitant]
     Active Substance: METFORMIN HYDROCHLORIDE
  23. IRBESARTAN. [Concomitant]
     Active Substance: IRBESARTAN
  24. TOPROL XL [Concomitant]
     Active Substance: METOPROLOL SUCCINATE
  25. ACETAZOLAMIDE. [Concomitant]
     Active Substance: ACETAZOLAMIDE

REACTIONS (1)
  - Dialysis [Not Recovered/Not Resolved]

NARRATIVE: CASE EVENT DATE: 20160802
